FAERS Safety Report 8175136-2 (Version None)
Quarter: 2012Q1

REPORT INFORMATION
  Report Type: 
  Country: None (occurrence: None)
  Receive Date: 20120229
  Receipt Date: 20120223
  Transmission Date: 20120608
  Serious: Yes (Life-Threatening, Hospitalization)
  Sender: FDA-Public Use
  Company Number: PHHY2012FR015467

PATIENT
  Sex: Female

DRUGS (12)
  1. POTASSIUM CHLORIDE [Interacting]
     Dosage: UNK
     Dates: start: 20120117
  2. POTASSIUM CHLORIDE [Interacting]
     Dosage: 1 DF, DAILY
     Dates: end: 20120107
  3. VOLTAREN [Interacting]
     Dosage: 1 DF, QD
     Dates: end: 20120107
  4. VALSARTAN [Suspect]
     Dosage: 160 MG, DAILY
     Dates: end: 20120107
  5. METFORMIN HCL [Suspect]
     Dosage: 1 G, QID
     Dates: end: 20120107
  6. LASIX [Interacting]
     Dosage: 20 MG, DAILY
     Dates: end: 20120102
  7. LERCANIDIPINE [Suspect]
     Dosage: 1 DF, QD
     Dates: end: 20120107
  8. JANUVIA [Suspect]
     Dosage: 1 DF, QD
     Dates: end: 20120107
  9. LASIX [Interacting]
     Dosage: UNK
     Dates: start: 20120111
  10. ENALAPRIL MALEATE AND HYDROCHLOROTHIAZIDE [Interacting]
     Dosage: 1 DF, DAILY
     Dates: end: 20120107
  11. LERCANIDIPINE [Suspect]
     Dosage: UNK
     Dates: start: 20120115
  12. LASIX [Interacting]
     Dosage: 40 MG, DAILY
     Dates: start: 20120102, end: 20120107

REACTIONS (6)
  - RENAL FAILURE ACUTE [None]
  - ASTHENIA [None]
  - LACTIC ACIDOSIS [None]
  - HYPERKALAEMIA [None]
  - CARDIO-RESPIRATORY ARREST [None]
  - HYPOGLYCAEMIA [None]
